FAERS Safety Report 9693615 (Version 3)
Quarter: 2013Q4

REPORT INFORMATION
  Report Type: Spontaneous
  Country: US (occurrence: US)
  Receive Date: 20131118
  Receipt Date: 20131220
  Transmission Date: 20140711
  Serious: Yes (Death, Hospitalization)
  Sender: FDA-Public Use
  Company Number: US-BAXTER-2013BAX044822

PATIENT
  Sex: Male

DRUGS (2)
  1. DIANEAL LOW CALCIUM [Suspect]
     Indication: PERITONEAL DIALYSIS
     Route: 033
     Dates: start: 20130517, end: 20131114
  2. DIANEAL PD2 [Suspect]
     Indication: PERITONEAL DIALYSIS
     Route: 033
     Dates: start: 201304, end: 20131114

REACTIONS (4)
  - Cerebrovascular accident [Fatal]
  - Myocardial infarction [Fatal]
  - Cardiac arrest [Not Recovered/Not Resolved]
  - Fall [Not Recovered/Not Resolved]
